FAERS Safety Report 4782052-2 (Version None)
Quarter: 2005Q3

REPORT INFORMATION
  Report Type: 
  Country: None (occurrence: None)
  Receive Date: 20050914
  Receipt Date: 20040818
  Transmission Date: 20060218
  Serious: Yes (Other)
  Sender: FDA-Public Use
  Company Number: 163-20785-04080375

PATIENT
  Age: 67 Year
  Sex: Female

DRUGS (5)
  1. THALOMID [Suspect]
     Indication: MULTIPLE MYELOMA
     Dosage: 300 MG, DAILY, ORAL
     Route: 048
     Dates: start: 20030909, end: 20040801
  2. DIABETA [Concomitant]
  3. SYNTHROID [Concomitant]
  4. DIOVAN [Concomitant]
  5. COLACE (DOCUSATE SODIUM) [Concomitant]

REACTIONS (3)
  - LOCALISED INFECTION [None]
  - SINUS ARRHYTHMIA [None]
  - SINUS BRADYCARDIA [None]
